FAERS Safety Report 10587670 (Version 1)
Quarter: 2014Q4

REPORT INFORMATION
  Report Type: Report from Study
  Country: BR (occurrence: BR)
  Receive Date: 20141117
  Receipt Date: 20141117
  Transmission Date: 20150529
  Serious: Yes (Death, Other)
  Sender: FDA-Public Use
  Company Number: PHHY2014BR148561

PATIENT
  Age: 20 Year
  Sex: Male
  Weight: 59 kg

DRUGS (3)
  1. FOLIC ACID. [Concomitant]
     Active Substance: FOLIC ACID
     Indication: SICKLE CELL ANAEMIA
     Dosage: UNK UKN, UNK
     Route: 065
  2. HYDREA [Concomitant]
     Active Substance: HYDROXYUREA
     Indication: HAEMOGLOBIN DECREASED
     Dosage: UNK UKN, UNK
     Route: 065
  3. EXJADE [Suspect]
     Active Substance: DEFERASIROX
     Indication: SICKLE CELL ANAEMIA
     Dosage: 3 DF, DAILY
     Route: 065

REACTIONS (7)
  - Vomiting [Fatal]
  - Syncope [Fatal]
  - Thrombosis [Fatal]
  - Cerebrovascular accident [Fatal]
  - Haemorrhage [Fatal]
  - Screaming [Fatal]
  - Neck pain [Fatal]

NARRATIVE: CASE EVENT DATE: 20140730
